FAERS Safety Report 13959557 (Version 5)
Quarter: 2018Q1

REPORT INFORMATION
  Report Type: Report from Study
  Country: CA (occurrence: CA)
  Receive Date: 20170911
  Receipt Date: 20180305
  Transmission Date: 20180508
  Serious: Yes (Hospitalization, Other)
  Sender: FDA-Public Use
  Company Number: CA-TAKEDA-2017TUS018579

PATIENT
  Age: 62 Year
  Sex: Male

DRUGS (6)
  1. ALCOHOL. [Suspect]
     Active Substance: ALCOHOL
     Indication: ALCOHOLISM
     Dosage: UNK
     Route: 048
  2. METFORMIN [Concomitant]
     Active Substance: METFORMIN HYDROCHLORIDE
     Dosage: UNK
  3. VENLAFAXINE [Concomitant]
     Active Substance: VENLAFAXINE HYDROCHLORIDE
     Dosage: UNK
  4. ATENOLOL. [Concomitant]
     Active Substance: ATENOLOL
     Dosage: UNK
  5. ROSUVASTATIN. [Concomitant]
     Active Substance: ROSUVASTATIN
     Dosage: UNK
  6. VEDOLIZUMAB [Suspect]
     Active Substance: VEDOLIZUMAB
     Indication: COLITIS ULCERATIVE
     Dosage: 300 MG, UNK
     Route: 042
     Dates: start: 20170330

REACTIONS (10)
  - Suicidal behaviour [Unknown]
  - Dizziness [Recovered/Resolved]
  - Eating disorder [Unknown]
  - Depression [Unknown]
  - Alcoholism [Recovering/Resolving]
  - Loss of consciousness [Recovered/Resolved]
  - Seizure [Unknown]
  - Heart rate irregular [Not Recovered/Not Resolved]
  - Blood pressure decreased [Unknown]
  - Dehydration [Unknown]

NARRATIVE: CASE EVENT DATE: 20170903
